FAERS Safety Report 21332917 (Version 1)
Quarter: 2022Q3

REPORT INFORMATION
  Report Type: Report from Study
  Country: US (occurrence: US)
  Receive Date: 20220914
  Receipt Date: 20220914
  Transmission Date: 20221027
  Serious: Yes (Other)
  Sender: FDA-Public Use
  Company Number: US-TAKEDA-2022TUS045819

PATIENT
  Age: 62 Year
  Sex: Female
  Weight: 60 kg

DRUGS (34)
  1. HUMAN IMMUNOGLOBULIN G [Suspect]
     Active Substance: HUMAN IMMUNOGLOBULIN G
     Indication: Neuropathy peripheral
     Dosage: 60 GRAM, Q4WEEKS
     Route: 042
     Dates: start: 20220505
  2. HUMAN IMMUNOGLOBULIN G [Suspect]
     Active Substance: HUMAN IMMUNOGLOBULIN G
     Indication: Osteoarthritis
  3. HUMAN IMMUNOGLOBULIN G [Suspect]
     Active Substance: HUMAN IMMUNOGLOBULIN G
     Indication: Stiff person syndrome
  4. Lmx [Concomitant]
  5. MAGNESIUM [Concomitant]
     Active Substance: MAGNESIUM
  6. ACETAMINOPHEN [Concomitant]
     Active Substance: ACETAMINOPHEN
  7. DIPHENHYDRAMINE [Concomitant]
     Active Substance: DIPHENHYDRAMINE
  8. SODIUM CHLORIDE [Concomitant]
     Active Substance: SODIUM CHLORIDE
  9. EPINEPHRINE [Concomitant]
     Active Substance: EPINEPHRINE
  10. THIAMINE HYDROCHLORIDE [Concomitant]
     Active Substance: THIAMINE HYDROCHLORIDE
  11. SELENIUM [Concomitant]
     Active Substance: SELENIUM
  12. ZINC [Concomitant]
     Active Substance: ZINC
  13. TYROSINE [Concomitant]
     Active Substance: TYROSINE
  14. LUTEIN [Concomitant]
     Active Substance: LUTEIN
  15. EVENING PRIMROSE [Concomitant]
  16. PREGNENOLONE [Concomitant]
     Active Substance: PREGNENOLONE
  17. UNSPECIFIED INGREDIENT [Concomitant]
     Active Substance: UNSPECIFIED INGREDIENT
  18. VITAMIN C [Concomitant]
     Active Substance: ASCORBIC ACID
  19. NALTREXONE HYDROCHLORIDE [Concomitant]
     Active Substance: NALTREXONE HYDROCHLORIDE
  20. DESMOPRESSIN [Concomitant]
     Active Substance: DESMOPRESSIN
  21. GABAPENTIN [Concomitant]
     Active Substance: GABAPENTIN
  22. ESTRADIOL [Concomitant]
     Active Substance: ESTRADIOL
  23. VITAMIN K [Concomitant]
     Active Substance: PHYTONADIONE
  24. PROGESTERONE [Concomitant]
     Active Substance: PROGESTERONE
  25. BIOTIN [Concomitant]
     Active Substance: BIOTIN
  26. ARMOUR THYROID [Concomitant]
     Active Substance: THYROID, PORCINE
  27. INTRAROSA [Concomitant]
     Active Substance: PRASTERONE
  28. VITAMIN D3 [Concomitant]
     Active Substance: CHOLECALCIFEROL
  29. SODIUM CHLORIDE [Concomitant]
     Active Substance: SODIUM CHLORIDE
  30. PROBIOTICS NOS [Concomitant]
     Active Substance: PROBIOTICS NOS
  31. TESTOSTERONE [Concomitant]
     Active Substance: TESTOSTERONE
  32. HYALURONIC ACID [Concomitant]
     Active Substance: HYALURONIC ACID
  33. HERBALS\TURMERIC [Concomitant]
     Active Substance: HERBALS\TURMERIC
  34. IODINE\POTASSIUM IODIDE [Concomitant]
     Active Substance: IODINE\POTASSIUM IODIDE

REACTIONS (11)
  - Neuropathy peripheral [Unknown]
  - Stress fracture [Unknown]
  - Burning sensation [Unknown]
  - Dyspepsia [Recovered/Resolved]
  - Adverse event [Unknown]
  - Headache [Unknown]
  - Nausea [Unknown]
  - Diarrhoea [Unknown]
  - Neck pain [Unknown]
  - Blood pressure abnormal [Unknown]
  - Feeling abnormal [Unknown]

NARRATIVE: CASE EVENT DATE: 20220803
